FAERS Safety Report 18433014 (Version 3)
Quarter: 2020Q4

REPORT INFORMATION
  Report Type: Report from Study
  Country: US (occurrence: US)
  Receive Date: 20201027
  Receipt Date: 20201112
  Transmission Date: 20210114
  Serious: Yes (Other)
  Sender: FDA-Public Use
  Company Number: NVSC2020US284578

PATIENT
  Age: 43 Year
  Sex: Male

DRUGS (2)
  1. COSENTYX [Suspect]
     Active Substance: SECUKINUMAB
     Indication: PSORIASIS
     Dosage: 300 MG, QMO
     Route: 058
  2. COSENTYX [Suspect]
     Active Substance: SECUKINUMAB
     Indication: PSORIASIS
     Dosage: 300 MG, QW
     Route: 058
     Dates: start: 20201015

REACTIONS (15)
  - Injection site pain [Unknown]
  - Pain [Not Recovered/Not Resolved]
  - Haemorrhage [Unknown]
  - Rhinorrhoea [Unknown]
  - Injection site mass [Unknown]
  - Feeling abnormal [Unknown]
  - Abdominal pain upper [Unknown]
  - Fatigue [Unknown]
  - Feeling hot [Unknown]
  - Malaise [Unknown]
  - Injection site erythema [Unknown]
  - Paraesthesia [Unknown]
  - Mood swings [Unknown]
  - Nausea [Unknown]
  - Nasopharyngitis [Unknown]

NARRATIVE: CASE EVENT DATE: 20201015
